FAERS Safety Report 11192670 (Version 1)
Quarter: 2015Q2

REPORT INFORMATION
  Report Type: Spontaneous
  Country: NL (occurrence: NL)
  Receive Date: 20150616
  Receipt Date: 20150616
  Transmission Date: 20150821
  Serious: Yes (Hospitalization)
  Sender: FDA-Public Use
  Company Number: NL-ABBVIE-15P-114-1409783-00

PATIENT
  Age: 56 Year
  Sex: Male

DRUGS (2)
  1. CREON FORTE CAPSULE MSR [Suspect]
     Active Substance: PANCRELIPASE
     Indication: PANCREATITIS CHRONIC
     Route: 048
     Dates: start: 201311, end: 201312
  2. OMEPRAZOL [Concomitant]
     Active Substance: OMEPRAZOLE
     Indication: PRODUCT USED FOR UNKNOWN INDICATION
     Route: 048
     Dates: start: 201310

REACTIONS (4)
  - Melaena [Recovered/Resolved]
  - Abdominal pain [Recovered/Resolved]
  - Nausea [Recovered/Resolved]
  - Haematemesis [Recovered/Resolved]

NARRATIVE: CASE EVENT DATE: 20131118
